FAERS Safety Report 13137267 (Version 1)
Quarter: 2017Q1

REPORT INFORMATION
  Report Type: Other
  Country: IT (occurrence: IT)
  Receive Date: 20170123
  Receipt Date: 20170123
  Transmission Date: 20170428
  Serious: Yes (Life-Threatening, Hospitalization, Other)
  Sender: FDA-Public Use
  Company Number: IT-LUPIN PHARMACEUTICALS INC.-2017-00316

PATIENT
  Age: 86 Year
  Sex: Female

DRUGS (3)
  1. RAMIPRIL. [Suspect]
     Active Substance: RAMIPRIL
     Indication: PRODUCT USED FOR UNKNOWN INDICATION
     Route: 065
  2. METFORMIN [Suspect]
     Active Substance: METFORMIN HYDROCHLORIDE
     Indication: PRODUCT USED FOR UNKNOWN INDICATION
     Route: 065
  3. ASPIRIN. [Suspect]
     Active Substance: ASPIRIN
     Indication: PRODUCT USED FOR UNKNOWN INDICATION
     Route: 065

REACTIONS (11)
  - Cerebral ischaemia [Unknown]
  - Abdominal pain [Unknown]
  - Hypotension [Unknown]
  - Decreased appetite [Unknown]
  - Toxicity to various agents [Unknown]
  - Hyperkalaemia [Unknown]
  - Acute kidney injury [Recovered/Resolved]
  - Cardiac arrest [Unknown]
  - Hypothermia [Unknown]
  - Lactic acidosis [Recovered/Resolved]
  - Diarrhoea [Unknown]
